FAERS Safety Report 6556818-2 (Version None)
Quarter: 2010Q1

REPORT INFORMATION
  Report Type: 
  Country: None (occurrence: None)
  Receive Date: 20100128
  Receipt Date: 20100118
  Transmission Date: 20100710
  Serious: Yes (Hospitalization, Other)
  Sender: FDA-Public Use
  Company Number: PHHY2010BR02394

PATIENT
  Sex: Female
  Weight: 69 kg

DRUGS (2)
  1. DIOVAN [Suspect]
     Indication: HYPERTENSION
     Dosage: 1 TABLET (160 MG) DAILY
     Route: 048
  2. SELOZOK [Concomitant]
     Indication: HYPERTENSION
     Dosage: 1 TABLET DAILY

REACTIONS (3)
  - FEELING ABNORMAL [None]
  - OVARIAN NEOPLASM [None]
  - OVARIAN OPERATION [None]
